FAERS Safety Report 12635378 (Version 2)
Quarter: 2016Q3

REPORT INFORMATION
  Report Type: Report from Study
  Country: US (occurrence: US)
  Receive Date: 20160809
  Receipt Date: 20160828
  Transmission Date: 20161109
  Serious: No
  Sender: FDA-Public Use
  Company Number: US-AMGEN-USASL2016100068

PATIENT
  Age: 15 Year
  Sex: Female

DRUGS (1)
  1. ENBREL [Suspect]
     Active Substance: ETANERCEPT
     Indication: JUVENILE IDIOPATHIC ARTHRITIS
     Dosage: UNK UNK, QWK
     Route: 065
     Dates: start: 2016

REACTIONS (11)
  - Unevaluable event [Unknown]
  - Therapy non-responder [Unknown]
  - Overweight [Unknown]
  - Fatigue [Unknown]
  - Condition aggravated [Unknown]
  - Mobility decreased [Unknown]
  - Injection site reaction [Not Recovered/Not Resolved]
  - Pyrexia [Unknown]
  - Gastroenteritis viral [Unknown]
  - Pain [Unknown]
  - Drug dose omission [Unknown]

NARRATIVE: CASE EVENT DATE: 2016
